FAERS Safety Report 8774093 (Version 1)
Quarter: 2012Q4

REPORT INFORMATION
  Report Type: Report from Study
  Country: CA (occurrence: CA)
  Receive Date: 20120907
  Receipt Date: 20120907
  Transmission Date: 20130627
  Serious: Yes (Other)
  Sender: FDA-Public Use
  Company Number: CA-JNJFOC-20120812875

PATIENT
  Sex: Male
  Weight: 154 kg

DRUGS (1)
  1. REMICADE [Suspect]
     Indication: CROHN^S DISEASE
     Route: 042
     Dates: start: 20080629

REACTIONS (3)
  - Fall [Unknown]
  - Immobile [Unknown]
  - Surgery [Unknown]
